FAERS Safety Report 4562866-4 (Version None)
Quarter: 2005Q1

REPORT INFORMATION
  Report Type: 
  Country: None (occurrence: None)
  Receive Date: 20050121
  Receipt Date: 20050103
  Transmission Date: 20050727
  Serious: Yes (Hospitalization)
  Sender: FDA-Public Use
  Company Number: US_0501109847

PATIENT
  Sex: Male
  Weight: 4 kg

DRUGS (4)
  1. HUMALOG [Suspect]
  2. HYDROCORTISONE [Concomitant]
  3. LEVOTHYROXINE [Concomitant]
  4. FLUDROCORTISONE [Concomitant]

REACTIONS (9)
  - CAESAREAN SECTION [None]
  - DIABETIC FOETOPATHY [None]
  - FOETAL MACROSOMIA [None]
  - HYPOCALCAEMIA [None]
  - HYPOGLYCAEMIA NEONATAL [None]
  - LARGE FOR DATES BABY [None]
  - MATERNAL DRUGS AFFECTING FOETUS [None]
  - NEONATAL DISORDER [None]
  - NEONATAL TACHYPNOEA [None]
